FAERS Safety Report 5380978-2 (Version None)
Quarter: 2007Q3

REPORT INFORMATION
  Report Type: 
  Country: None (occurrence: None)
  Receive Date: 20070702
  Receipt Date: 20061102
  Transmission Date: 20080115
  Serious: Yes (Hospitalization)
  Sender: FDA-Public Use
  Company Number: SPV1-2006-01363

PATIENT
  Age: 20 Year
  Sex: Female

DRUGS (3)
  1. PENTASA [Suspect]
     Indication: COLITIS ULCERATIVE
     Dosage: 1000 MG, DAILY, RECTAL
     Route: 054
     Dates: start: 20060926, end: 20061003
  2. PENTASA [Suspect]
     Indication: COLITIS
     Dosage: 750 MG, 3X/DAY; TID; DAILY, ORAL
     Route: 048
     Dates: start: 20051201
  3. BETAMETHASONE /00008502/ (BETAMETHASONE SODIUM PHOSPHATE) [Concomitant]

REACTIONS (1)
  - PYREXIA [None]
